FAERS Safety Report 11782747 (Version 2)
Quarter: 2016Q1

REPORT INFORMATION
  Report Type: Spontaneous
  Country: US (occurrence: US)
  Receive Date: 20151127
  Receipt Date: 20160112
  Transmission Date: 20160525
  Serious: No
  Sender: FDA-Public Use
  Company Number: US-PFIZER INC-2015406159

PATIENT
  Age: 31 Year
  Sex: Male
  Weight: 74 kg

DRUGS (9)
  1. METFORMIN [Concomitant]
     Active Substance: METFORMIN HYDROCHLORIDE
     Indication: DIABETES MELLITUS
     Dosage: 1000 EXTENDED RELEASE TABLETS BY MOUTH , 2X/DAY
     Route: 048
  2. CLONAZEPAM. [Concomitant]
     Active Substance: CLONAZEPAM
     Indication: ANXIETY
     Dosage: UNK
     Dates: start: 20151020, end: 201511
  3. XANAX [Suspect]
     Active Substance: ALPRAZOLAM
     Indication: ANXIETY
     Dosage: UNK
     Route: 048
     Dates: start: 2009
  4. ALBUTEROL. [Concomitant]
     Active Substance: ALBUTEROL
     Indication: BRONCHITIS
  5. XANAX [Suspect]
     Active Substance: ALPRAZOLAM
     Dosage: 2 MG, 2X/DAY PRN
     Route: 048
  6. SEROQUEL [Concomitant]
     Active Substance: QUETIAPINE FUMARATE
     Dosage: 400 EXTENDED RELEASE
     Dates: start: 2015, end: 201511
  7. ALBUTEROL. [Concomitant]
     Active Substance: ALBUTEROL
     Indication: WHEEZING
     Dosage: 2 DF, AS NEEDED; 2 PUFFS
     Route: 055
     Dates: start: 20151120
  8. LISINOPRIL. [Concomitant]
     Active Substance: LISINOPRIL
     Indication: HYPERTENSION
     Dosage: 10 MG, 2X/DAY, ONE IM MORNING AND ONE IN EVENING
  9. LEVEMIR [Concomitant]
     Active Substance: INSULIN DETEMIR
     Indication: DIABETES MELLITUS
     Dosage: UNK

REACTIONS (6)
  - Insomnia [Unknown]
  - Hunger [Not Recovered/Not Resolved]
  - Liver disorder [Unknown]
  - Hiccups [Not Recovered/Not Resolved]
  - Crying [Not Recovered/Not Resolved]
  - Tremor [Not Recovered/Not Resolved]

NARRATIVE: CASE EVENT DATE: 20151122
